FAERS Safety Report 17281437 (Version 1)
Quarter: 2020Q1

REPORT INFORMATION
  Report Type: Spontaneous
  Country: GB (occurrence: GB)
  Receive Date: 20200117
  Receipt Date: 20200117
  Transmission Date: 20200409
  Serious: Yes (Other)
  Sender: FDA-Public Use
  Company Number: GB-TEVA-2020-GB-1168349

PATIENT
  Age: 62 Year
  Sex: Male
  Weight: 81 kg

DRUGS (7)
  1. DOUBLEBASE [Concomitant]
     Active Substance: ISOPROPYL MYRISTATE\PARAFFIN
     Dosage: 2 DOSAGE FORMS PER DAY
     Dates: start: 20190820
  2. LOSARTAN. [Concomitant]
     Active Substance: LOSARTAN
     Dosage: 1 DOSAGE FORM PER DAY
     Dates: start: 20191125
  3. AMLODIPINE [Suspect]
     Active Substance: AMLODIPINE BESYLATE
     Dosage: 10MG PER DAY
     Dates: start: 20190820, end: 20191125
  4. ATORVASTATIN [Concomitant]
     Active Substance: ATORVASTATIN
     Dosage: 1 DOSAGE FORM PER DAY
     Dates: start: 20190820
  5. HYDROCORTISONE. [Concomitant]
     Active Substance: HYDROCORTISONE
     Dosage: APPLY TO AFFECTED AREA (2 DOSAGE FORM PER DAY)
     Dates: start: 20191007, end: 20191106
  6. OMEPRAZOLE. [Concomitant]
     Active Substance: OMEPRAZOLE
     Dosage: TAKE ONE TO TWO DAILY. CAN BE INCREASED UP TO 4
     Dates: start: 20190820
  7. VARDENAFIL [Concomitant]
     Active Substance: VARDENAFIL HYDROCHLORIDE
     Dosage: AS DIRECTED
     Dates: start: 20190820

REACTIONS (1)
  - Joint swelling [Recovered/Resolved]
